FAERS Safety Report 23677699 (Version 4)
Quarter: 2024Q2

REPORT INFORMATION
  Report Type: Spontaneous
  Country: JP (occurrence: JP)
  Receive Date: 20240327
  Receipt Date: 20240527
  Transmission Date: 20240716
  Serious: Yes (Hospitalization, Other)
  Sender: FDA-Public Use
  Company Number: JP-TAKEDA-2024TUS028198

PATIENT
  Age: 47 Year
  Sex: Female
  Weight: 48 kg

DRUGS (2)
  1. LIALDA [Suspect]
     Active Substance: MESALAMINE
     Indication: Colitis ulcerative
     Dosage: 4800 MILLIGRAM, QD
     Route: 048
     Dates: start: 20231218, end: 20240225
  2. MIYA-BM [Concomitant]
     Active Substance: CLOSTRIDIUM BUTYRICUM SPORES STRAIN M-55
     Indication: Colitis ulcerative
     Dosage: 3 GRAM, Q8HR
     Route: 065
     Dates: start: 20231218

REACTIONS (5)
  - Pemphigus [Recovering/Resolving]
  - Enteritis infectious [Recovering/Resolving]
  - Clostridium difficile colitis [Recovering/Resolving]
  - Hypersensitivity [Recovering/Resolving]
  - Colitis ulcerative [Recovering/Resolving]

NARRATIVE: CASE EVENT DATE: 20231224
